FAERS Safety Report 16165973 (Version 1)
Quarter: 2019Q2

REPORT INFORMATION
  Report Type: Spontaneous
  Country: ES (occurrence: ES)
  Receive Date: 20190406
  Receipt Date: 20190406
  Transmission Date: 20190711
  Serious: Yes (Death, Other)
  Sender: FDA-Public Use
  Company Number: ES-ACCORD-118667

PATIENT
  Age: 78 Year
  Sex: Female

DRUGS (9)
  1. OXALIPLATIN. [Suspect]
     Active Substance: OXALIPLATIN
     Indication: GASTRIC CANCER
     Dates: start: 20190124
  2. TRASTUZUMAB. [Suspect]
     Active Substance: TRASTUZUMAB
     Indication: GASTRIC CANCER
     Route: 042
     Dates: start: 20190124, end: 20190124
  3. ATORVASTATIN [Concomitant]
     Active Substance: ATORVASTATIN
  4. SEGURIL [Concomitant]
     Active Substance: FUROSEMIDE
  5. ELIQUIS [Concomitant]
     Active Substance: APIXABAN
  6. PANTOPRAZOLE [Concomitant]
     Active Substance: PANTOPRAZOLE
  7. CAPECITABINE. [Suspect]
     Active Substance: CAPECITABINE
     Indication: GASTRIC CANCER
     Dates: start: 20190124
  8. BISOPROLOL [Concomitant]
     Active Substance: BISOPROLOL
  9. RAMIPRIL. [Concomitant]
     Active Substance: RAMIPRIL

REACTIONS (5)
  - Hypothermia [Fatal]
  - Diarrhoea [Fatal]
  - Acute kidney injury [Fatal]
  - Nausea [Fatal]
  - Asthenia [Fatal]

NARRATIVE: CASE EVENT DATE: 20190124
